FAERS Safety Report 15412401 (Version 5)
Quarter: 2018Q4

REPORT INFORMATION
  Report Type: Report from Study
  Country: CN (occurrence: CN)
  Receive Date: 20180921
  Receipt Date: 20181107
  Transmission Date: 20190204
  Serious: Yes (Hospitalization)
  Sender: FDA-Public Use
  Company Number: CN-ROCHE-2184196

PATIENT
  Age: 44 Year
  Sex: Female
  Weight: 60.5 kg

DRUGS (53)
  1. CARBOPLATIN. [Suspect]
     Active Substance: CARBOPLATIN
     Indication: OVARIAN CANCER
     Dosage: DATE OF MOST RECENT DOSE OF CARBOPLATIN OF 600 MG PRIOR TO AE ONSET 21/AUG/2018?AT A DOSE TO ACHIEVE
     Route: 042
     Dates: start: 20180706
  2. IRON POLYSACCHARIDE [Concomitant]
     Indication: ANAEMIA
     Route: 065
     Dates: start: 20180621, end: 20180904
  3. SPIRONOLACTONE. [Concomitant]
     Active Substance: SPIRONOLACTONE
     Indication: HYPERALDOSTERONISM
     Route: 065
     Dates: start: 20180611
  4. DEXAMETHASONE ACETATE [Concomitant]
     Active Substance: DEXAMETHASONE ACETATE
     Route: 048
     Dates: start: 20180729, end: 20180730
  5. POTASSIUM CHLORIDE. [Concomitant]
     Active Substance: POTASSIUM CHLORIDE
     Route: 065
     Dates: start: 20181009, end: 20181009
  6. EPIMEDIUM [Concomitant]
     Indication: BONE MARROW FAILURE
     Route: 065
     Dates: start: 20180801, end: 20180818
  7. EPIMEDIUM [Concomitant]
     Route: 065
     Dates: start: 20180823, end: 20180908
  8. PACLITAXEL. [Suspect]
     Active Substance: PACLITAXEL
     Indication: OVARIAN CANCER
     Dosage: DATE OF MOST RECENT DOSE OF PACLITAXEL OF 270 MG PRIOR TO AE ONSET 21/AUG/2018
     Route: 042
     Dates: start: 20180706
  9. DEXAMETHASONE ACETATE [Concomitant]
     Active Substance: DEXAMETHASONE ACETATE
     Route: 048
     Dates: start: 20181008, end: 20181009
  10. LANSOPRAZOLE. [Concomitant]
     Active Substance: LANSOPRAZOLE
     Route: 065
     Dates: start: 20181009, end: 20181009
  11. LANSOPRAZOLE. [Concomitant]
     Active Substance: LANSOPRAZOLE
     Route: 065
     Dates: start: 20180918, end: 20180918
  12. POTASSIUM CHLORIDE. [Concomitant]
     Active Substance: POTASSIUM CHLORIDE
     Route: 065
     Dates: start: 20180821, end: 20180821
  13. POTASSIUM CHLORIDE. [Concomitant]
     Active Substance: POTASSIUM CHLORIDE
     Route: 065
     Dates: start: 20181030, end: 20181030
  14. AMINO ACID [Concomitant]
     Active Substance: AMINO ACIDS
     Route: 065
     Dates: start: 20181009, end: 20181009
  15. LANSOPRAZOLE. [Concomitant]
     Active Substance: LANSOPRAZOLE
     Route: 065
     Dates: start: 20181030, end: 20181030
  16. AMIFOSTINE. [Concomitant]
     Active Substance: AMIFOSTINE
     Route: 065
     Dates: start: 20180821, end: 20180821
  17. AMINO ACID [Concomitant]
     Active Substance: AMINO ACIDS
     Route: 065
     Dates: start: 20180821, end: 20180821
  18. POTASSIUM CHLORIDE. [Concomitant]
     Active Substance: POTASSIUM CHLORIDE
     Route: 065
     Dates: start: 20180730, end: 20180730
  19. ANGELICA [Concomitant]
     Indication: BONE MARROW FAILURE
     Route: 065
     Dates: start: 20180801, end: 20180818
  20. AZASETRON HYDROCHLORIDE [Concomitant]
     Active Substance: AZASETRON HYDROCHLORIDE
     Route: 065
     Dates: start: 20180821, end: 20180821
  21. ESTAZOLAM. [Concomitant]
     Active Substance: ESTAZOLAM
     Route: 065
     Dates: start: 20181029, end: 20181030
  22. AMIKACIN SULFATE. [Concomitant]
     Active Substance: AMIKACIN SULFATE
     Indication: MOUTH ULCERATION
     Route: 065
     Dates: start: 20180915, end: 20180915
  23. ATEZOLIZUMAB. [Suspect]
     Active Substance: ATEZOLIZUMAB
     Indication: OVARIAN CANCER
     Dosage: DATE OF MOST RECENT DOSE OF ATEZOLIZUMAB PRIOR TO SAE ONSET: 21/AUG/2018
     Route: 042
     Dates: start: 20180706
  24. IRON POLYSACCHARIDE [Concomitant]
     Route: 065
     Dates: start: 20180903, end: 20180908
  25. DEXAMETHASONE ACETATE [Concomitant]
     Active Substance: DEXAMETHASONE ACETATE
     Route: 048
     Dates: start: 20180820, end: 20180821
  26. AZASETRON HYDROCHLORIDE [Concomitant]
     Active Substance: AZASETRON HYDROCHLORIDE
     Route: 065
     Dates: start: 20180918, end: 20180918
  27. AZASETRON HYDROCHLORIDE [Concomitant]
     Active Substance: AZASETRON HYDROCHLORIDE
     Route: 065
     Dates: start: 20181030, end: 20181030
  28. ESTAZOLAM. [Concomitant]
     Active Substance: ESTAZOLAM
     Route: 065
     Dates: start: 20180731, end: 20180731
  29. JUJUBE [Concomitant]
     Indication: BONE MARROW FAILURE
     Route: 065
     Dates: start: 20180801, end: 20180818
  30. RADIX SOPHORAE FLAVESCENTIS [Concomitant]
     Indication: BONE MARROW FAILURE
     Route: 065
     Dates: start: 20180801, end: 20180818
  31. ESTAZOLAM. [Concomitant]
     Active Substance: ESTAZOLAM
     Route: 065
     Dates: start: 20180910, end: 20180911
  32. LIDOCAINE HYDROCHLORIDE. [Concomitant]
     Active Substance: LIDOCAINE HYDROCHLORIDE
     Indication: MOUTH ULCERATION
     Route: 065
     Dates: start: 20180915, end: 20180915
  33. AMIFOSTINE. [Concomitant]
     Active Substance: AMIFOSTINE
     Route: 065
     Dates: start: 20181009, end: 20181009
  34. POVIDONE-IODINE. [Concomitant]
     Active Substance: POVIDONE-IODINE
     Route: 065
     Dates: start: 20181008, end: 20181008
  35. IRON POLYSACCHARIDE [Concomitant]
     Route: 065
     Dates: start: 20180913
  36. LANSOPRAZOLE. [Concomitant]
     Active Substance: LANSOPRAZOLE
     Route: 065
     Dates: start: 20180730, end: 20180730
  37. AMIFOSTINE. [Concomitant]
     Active Substance: AMIFOSTINE
     Route: 065
     Dates: start: 20180730, end: 20180730
  38. AMINO ACID [Concomitant]
     Active Substance: AMINO ACIDS
     Route: 065
     Dates: start: 20180730, end: 20180730
  39. POTASSIUM CHLORIDE. [Concomitant]
     Active Substance: POTASSIUM CHLORIDE
     Route: 065
     Dates: start: 20180918, end: 20180918
  40. AZASETRON HYDROCHLORIDE [Concomitant]
     Active Substance: AZASETRON HYDROCHLORIDE
     Route: 065
     Dates: start: 20180730, end: 20180730
  41. DEXAMETHASONE SODIUM PHOSPHATE. [Concomitant]
     Active Substance: DEXAMETHASONE SODIUM PHOSPHATE
     Indication: MOUTH ULCERATION
     Route: 065
     Dates: start: 20180915, end: 20180915
  42. LANSOPRAZOLE. [Concomitant]
     Active Substance: LANSOPRAZOLE
     Route: 065
     Dates: start: 20180821, end: 20180821
  43. JUJUBE [Concomitant]
     Route: 065
     Dates: start: 20180823, end: 20180908
  44. SODIUM CHLORIDE. [Concomitant]
     Active Substance: SODIUM CHLORIDE
     Route: 065
     Dates: start: 20180821, end: 20180821
  45. ESTAZOLAM. [Concomitant]
     Active Substance: ESTAZOLAM
     Route: 065
     Dates: start: 20180716, end: 20180730
  46. LEUCOGEN (CHINA) [Concomitant]
     Indication: BONE MARROW FAILURE
     Route: 065
     Dates: start: 20180912
  47. LIDOCAINE HYDROCHLORIDE. [Concomitant]
     Active Substance: LIDOCAINE HYDROCHLORIDE
     Route: 065
     Dates: start: 20181008, end: 20181008
  48. AMIFOSTINE. [Concomitant]
     Active Substance: AMIFOSTINE
     Route: 065
     Dates: start: 20180918, end: 20180918
  49. AMIFOSTINE. [Concomitant]
     Active Substance: AMIFOSTINE
     Route: 065
     Dates: start: 20181030, end: 20181030
  50. BEVACIZUMAB. [Suspect]
     Active Substance: BEVACIZUMAB
     Indication: OVARIAN CANCER
     Dosage: DATE OF MOST RECENT DOSE OF BEVACIZUMAB OF 967.5 MG PRIOR TO AE ONSET 21/AUG/2018
     Route: 042
     Dates: start: 20180730
  51. DEXAMETHASONE ACETATE [Concomitant]
     Active Substance: DEXAMETHASONE ACETATE
     Route: 065
     Dates: start: 20181029, end: 20181030
  52. BLOOD GINSENG [Concomitant]
     Indication: BONE MARROW FAILURE
     Route: 065
     Dates: start: 20180801, end: 20180818
  53. ASTRAGALUS [Concomitant]
     Indication: BONE MARROW FAILURE
     Route: 065
     Dates: start: 20180801, end: 20180818

REACTIONS (3)
  - Hyperthyroidism [Recovered/Resolved]
  - Hypothyroidism [Not Recovered/Not Resolved]
  - Liver injury [Recovered/Resolved]

NARRATIVE: CASE EVENT DATE: 20180828
